FAERS Safety Report 6930537-2 (Version None)
Quarter: 2010Q3

REPORT INFORMATION
  Report Type: 
  Country: None (occurrence: None)
  Receive Date: 20100818
  Receipt Date: 20100811
  Transmission Date: 20110219
  Serious: Yes (Other)
  Sender: FDA-Public Use
  Company Number: A0875184A

PATIENT
  Age: 70 Year
  Sex: Female

DRUGS (3)
  1. ADVAIR DISKUS 100/50 [Suspect]
     Indication: CHRONIC OBSTRUCTIVE PULMONARY DISEASE
     Dosage: 1PUFF TWICE PER DAY
     Route: 055
     Dates: start: 20070101
  2. SPIRIVA [Concomitant]
  3. SIMVASTATIN [Concomitant]

REACTIONS (3)
  - CANDIDIASIS [None]
  - DRUG ADMINISTRATION ERROR [None]
  - PNEUMONIA [None]
